FAERS Safety Report 4318304-X (Version None)
Quarter: 2004Q1

REPORT INFORMATION
  Report Type: 
  Country: None (occurrence: None)
  Receive Date: 20040315
  Receipt Date: 20031203
  Transmission Date: 20041129
  Serious: No
  Sender: FDA-Public Use
  Company Number: 2003188984US

PATIENT
  Age: 82 Year
  Sex: Female

DRUGS (5)
  1. BEXTRA [Suspect]
     Indication: RHEUMATOID ARTHRITIS
     Dosage: 10 MG,
     Dates: start: 20031127
  2. ELIDEL [Concomitant]
  3. SYNTHROID [Concomitant]
  4. LOPRESSOR [Concomitant]
  5. TIAZAC [Concomitant]

REACTIONS (2)
  - PRURITUS [None]
  - SKIN BURNING SENSATION [None]
